FAERS Safety Report 7998963-0 (Version None)
Quarter: 2011Q4

REPORT INFORMATION
  Report Type: 
  Country: None (occurrence: None)
  Receive Date: 20111221
  Receipt Date: 20111215
  Transmission Date: 20120403
  Serious: Yes (Other)
  Sender: FDA-Public Use
  Company Number: CHPA2011US018204

PATIENT
  Age: 67 Year
  Sex: Female

DRUGS (2)
  1. PRENATAL [Concomitant]
     Indication: CARDIAC DISORDER
     Dosage: UNK, UNK
     Route: 048
     Dates: start: 20110901
  2. FERROUS SULFATE TAB [Suspect]
     Indication: ANAEMIA
     Dosage: 1 DF, ONCE/SINGLE
     Route: 048
     Dates: start: 20111215, end: 20111215

REACTIONS (5)
  - HYPERSENSITIVITY [None]
  - DYSPNOEA [None]
  - TONGUE DISCOLOURATION [None]
  - URTICARIA [None]
  - SWOLLEN TONGUE [None]
